FAERS Safety Report 11873147 (Version 1)
Quarter: 2015Q4

REPORT INFORMATION
  Report Type: Spontaneous
  Country: IN (occurrence: IN)
  Receive Date: 20151228
  Receipt Date: 20151228
  Transmission Date: 20160305
  Serious: Yes (Hospitalization)
  Sender: FDA-Public Use
  Company Number: PHHY2015IN165823

PATIENT
  Age: 25 Year
  Sex: Male

DRUGS (1)
  1. TERBINAFINE. [Suspect]
     Active Substance: TERBINAFINE
     Indication: ONYCHOMYCOSIS
     Dosage: 250 MG, QD
     Route: 048

REACTIONS (6)
  - Pityriasis rosea [Recovered/Resolved]
  - Rash pruritic [Recovered/Resolved]
  - Papule [Recovered/Resolved]
  - Rash generalised [Unknown]
  - Nail disorder [Recovered/Resolved]
  - Pruritus [Recovered/Resolved]
